FAERS Safety Report 6252428-5 (Version None)
Quarter: 2009Q3

REPORT INFORMATION
  Report Type: 
  Country: None (occurrence: None)
  Receive Date: 20090701
  Receipt Date: 20090625
  Transmission Date: 20100115
  Serious: Yes (Hospitalization, Other)
  Sender: FDA-Public Use
  Company Number: US-JNJFOC-20090609056

PATIENT
  Sex: Male
  Weight: 100.25 kg

DRUGS (11)
  1. HALDOL [Suspect]
     Indication: AGITATION
     Route: 065
  2. HALOPERIDOL [Suspect]
     Indication: PARKINSONISM
     Route: 042
  3. DONEPEZIL HCL [Concomitant]
     Indication: DEMENTIA ALZHEIMER'S TYPE
     Route: 048
  4. MEMANTINE [Concomitant]
     Indication: DEMENTIA ALZHEIMER'S TYPE
     Route: 050
  5. CITALOPRAM HYDROBROMIDE [Concomitant]
     Indication: DEPRESSION
     Route: 048
  6. ASPIRIN [Concomitant]
     Indication: PROPHYLAXIS
     Route: 048
  7. QUETIAPINE FUMARATE [Concomitant]
     Indication: ANXIETY
     Route: 048
  8. LEVOTHYROXINE SODIUM [Concomitant]
     Indication: HYPOTHYROIDISM
     Route: 048
  9. L-TRYPTOPHAN [Concomitant]
     Indication: MEDICAL DIET
     Route: 048
  10. MELOXICAM [Concomitant]
     Indication: ARTHRITIS
     Route: 048
  11. BENZTROPINE MESYLATE [Concomitant]
     Indication: PARKINSONISM
     Route: 048

REACTIONS (6)
  - ABASIA [None]
  - AGITATION [None]
  - DEHYDRATION [None]
  - INCOHERENT [None]
  - INCONTINENCE [None]
  - PARKINSONISM [None]
